FAERS Safety Report 5134075-1 (Version None)
Quarter: 2006Q4

REPORT INFORMATION
  Report Type: 
  Country: None (occurrence: None)
  Receive Date: 20061024
  Receipt Date: 20061019
  Transmission Date: 20070319
  Serious: Yes (Life-Threatening, Hospitalization)
  Sender: FDA-Public Use
  Company Number: PHBS2006TR16253

PATIENT
  Age: 36 Year
  Sex: Male

DRUGS (2)
  1. TRILEPTAL [Suspect]
     Indication: EPILEPSY
     Dosage: 1200 MG/DAY
     Route: 048
     Dates: start: 20060902, end: 20061004
  2. CITALOPRAM [Concomitant]
     Indication: ANXIETY
     Dosage: 20 MG/DAY
     Route: 048
     Dates: start: 20060902, end: 20061004

REACTIONS (6)
  - BLOOD THYROID STIMULATING HORMONE DECREASED [None]
  - CONFUSIONAL STATE [None]
  - ELECTROENCEPHALOGRAM ABNORMAL [None]
  - ENCEPHALOPATHY [None]
  - HYPERHIDROSIS [None]
  - VISUAL DISTURBANCE [None]
